FAERS Safety Report 4288710-0 (Version None)
Quarter: 2004Q1

REPORT INFORMATION
  Report Type: 
  Country: None (occurrence: None)
  Receive Date: 20040209
  Receipt Date: 20031219
  Transmission Date: 20041129
  Serious: Yes (Disabling)
  Sender: FDA-Public Use
  Company Number: WAES 0312USA02200

PATIENT
  Age: 59 Year
  Sex: Female
  Weight: 69 kg

DRUGS (9)
  1. FOSAMAX [Suspect]
     Indication: OSTEOPOROSIS
     Route: 048
     Dates: start: 20030623, end: 20031201
  2. FOSAMAX [Suspect]
     Route: 048
     Dates: start: 20011201, end: 20030623
  3. ASPIRIN [Concomitant]
  4. CALCIUM (UNSPECIFIED) AND VITAMIN D (UNSPECIFIED) [Concomitant]
  5. OGEN [Concomitant]
     Indication: HORMONE REPLACEMENT THERAPY
  6. PEPCID [Concomitant]
     Route: 048
  7. MOTRIN [Concomitant]
  8. MAGNESIUM CHLORIDE [Concomitant]
  9. VITAMINS (UNSPECIFIED) [Concomitant]

REACTIONS (6)
  - ACCIDENT [None]
  - FALL [None]
  - HUMERUS FRACTURE [None]
  - MEDICATION ERROR [None]
  - REFLEX SYMPATHETIC DYSTROPHY [None]
  - ROTATOR CUFF SYNDROME [None]
